FAERS Safety Report 7500808-X (Version None)
Quarter: 2011Q2

REPORT INFORMATION
  Report Type: 
  Country: None (occurrence: None)
  Receive Date: 20110524
  Receipt Date: 20110512
  Transmission Date: 20111010
  Serious: Yes (Hospitalization)
  Sender: FDA-Public Use
  Company Number: A0787462A

PATIENT
  Age: 59 Year
  Sex: Male
  Weight: 90.9 kg

DRUGS (11)
  1. ASPIRIN [Concomitant]
  2. AVANDIA [Suspect]
     Dosage: 4MG TWICE PER DAY
     Route: 048
     Dates: start: 20050401, end: 20080501
  3. CARVEDILOL [Concomitant]
  4. TENORMIN [Concomitant]
  5. VALSARTAN [Concomitant]
  6. SIMVASTATIN [Concomitant]
  7. AVANDARYL [Suspect]
     Indication: DIABETES MELLITUS
     Route: 048
     Dates: start: 20060501
  8. LEVOTHYROXINE SODIUM [Concomitant]
  9. FENOFIBRATE [Concomitant]
  10. DOCUSATE [Concomitant]
  11. GLIMEPIRIDE [Concomitant]

REACTIONS (3)
  - MYOCARDIAL ISCHAEMIA [None]
  - CORONARY ARTERY DISEASE [None]
  - MYOCARDIAL INFARCTION [None]
